FAERS Safety Report 7019047-4 (Version None)
Quarter: 2010Q3

REPORT INFORMATION
  Report Type: 
  Country: None (occurrence: None)
  Receive Date: 20100928
  Receipt Date: 20100920
  Transmission Date: 20110219
  Serious: Yes (Other)
  Sender: FDA-Public Use
  Company Number: A0857290A

PATIENT
  Age: 40 Year
  Sex: Male

DRUGS (5)
  1. LAMOTRIGINE [Suspect]
     Dosage: 50MG TWICE PER DAY
     Route: 048
     Dates: start: 20100101, end: 20100201
  2. LAMICTAL [Suspect]
     Dosage: 150MG TWICE PER DAY
     Route: 048
     Dates: start: 20000101
  3. MONOSODIUM GLUTAMATE [Suspect]
  4. ADDITIVES (UNSPECIFIED) [Suspect]
  5. NITRATES (UNSPECIFIED) [Suspect]

REACTIONS (8)
  - AMNESIA [None]
  - CONVULSION [None]
  - FEELING ABNORMAL [None]
  - FLIGHT OF IDEAS [None]
  - GASTRIC DISORDER [None]
  - INSOMNIA [None]
  - POOR QUALITY SLEEP [None]
  - SLEEP DISORDER [None]
